FAERS Safety Report 18212377 (Version 1)
Quarter: 2020Q3

REPORT INFORMATION
  Report Type: Spontaneous
  Country: US (occurrence: US)
  Receive Date: 20200831
  Receipt Date: 20200831
  Transmission Date: 20201103
  Serious: Yes (Hospitalization, Other)
  Sender: FDA-Public Use
  Company Number: US-PBT-000461

PATIENT
  Age: 63 Year

DRUGS (2)
  1. SOFOSBUVIR,LEDIPASVIR [Concomitant]
     Indication: HEPATITIS C
     Dosage: 12 WEEKS OF LEDIPASVIR/SOFOSBUVIR
     Route: 065
  2. TACROLIMUS. [Suspect]
     Active Substance: TACROLIMUS
     Indication: PROPHYLAXIS AGAINST TRANSPLANT REJECTION
     Dosage: LOW?DOSE TACROLIMUS 1.5 MG TWICE DAILY
     Route: 065

REACTIONS (3)
  - Liver transplant rejection [Unknown]
  - Drug ineffective [Unknown]
  - COVID-19 pneumonia [Recovered/Resolved]
